FAERS Safety Report 5908450-9 (Version None)
Quarter: 2008Q3

REPORT INFORMATION
  Report Type: 
  Country: None (occurrence: None)
  Receive Date: 20080930
  Receipt Date: 20080923
  Transmission Date: 20090109
  Serious: Yes (Hospitalization)
  Sender: FDA-Public Use
  Company Number: IPS_01251_2008

PATIENT
  Age: 75 Year
  Sex: Female

DRUGS (3)
  1. APOKYN [Suspect]
     Indication: PARKINSON'S DISEASE
     Dosage: 0.4 ML BID SUBCUTANEOUS
     Route: 058
     Dates: start: 20080801, end: 20080801
  2. APOKYN [Suspect]
     Indication: PARKINSON'S DISEASE
     Dosage: 0.2 ML BID SUBCUTANEOUS
     Route: 058
     Dates: start: 20080801, end: 20080801
  3. APOKYN [Suspect]
     Indication: PARKINSON'S DISEASE
     Dosage: 0.3 ML BID SUBCUTANEOUS
     Route: 058
     Dates: start: 20080801, end: 20080801

REACTIONS (4)
  - DIZZINESS [None]
  - DYSSTASIA [None]
  - FALL [None]
  - SPINAL FRACTURE [None]
